FAERS Safety Report 10098881 (Version 2)
Quarter: 2014Q2

REPORT INFORMATION
  Report Type: Spontaneous
  Country: US (occurrence: US)
  Receive Date: 20140423
  Receipt Date: 20140502
  Transmission Date: 20141212
  Serious: Yes (Hospitalization)
  Sender: FDA-Public Use
  Company Number: US-SA-2014SA045827

PATIENT
  Age: 74 Year
  Sex: Female
  Weight: 154 kg

DRUGS (7)
  1. MULTAQ [Suspect]
     Indication: ATRIAL FIBRILLATION
     Route: 065
     Dates: start: 20140329, end: 20140407
  2. HYDROCHLOROTHIAZIDE [Concomitant]
     Dosage: DOSE 12.5
     Dates: start: 2007
  3. FENOFIBRATE [Concomitant]
     Dates: start: 2009
  4. CARVEDILOL [Concomitant]
     Indication: BLOOD PRESSURE
     Dates: start: 2007
  5. LORAZEPAM [Concomitant]
     Dates: start: 2007
  6. ASPIRIN [Concomitant]
     Indication: ANTIPLATELET THERAPY
     Dates: start: 2007
  7. ALL OTHER THERAPEUTIC PRODUCTS [Concomitant]
     Dates: start: 2009

REACTIONS (2)
  - Heart rate increased [Recovered/Resolved]
  - Drug ineffective [Unknown]
